FAERS Safety Report 25727167 (Version 1)
Quarter: 2025Q3

REPORT INFORMATION
  Report Type: Spontaneous
  Country: US (occurrence: None)
  Receive Date: 20250825
  Receipt Date: 20250825
  Transmission Date: 20251021
  Serious: Yes (Hospitalization)
  Sender: FDA-CTU
  Company Number: None

PATIENT
  Age: 69 Year
  Sex: Male

DRUGS (13)
  1. TACROLIMUS [Suspect]
     Active Substance: TACROLIMUS
     Indication: Transplant
     Dosage: 3 MG TWICE  DAY ORAL ?
     Route: 048
     Dates: start: 20250730
  2. MYCOPHENOLIC ACID [Suspect]
     Active Substance: MYCOPHENOLIC ACID
     Indication: Transplant
     Dosage: 720 TWICE A DAY ORAL
     Route: 048
     Dates: start: 20250730
  3. SODIUM BICARBONATE 10G [Concomitant]
  4. TAB-A-VITE WITH IRON [Concomitant]
  5. METOPROLOL SUCCINATE ER 50MG [Concomitant]
  6. CALCIUM 600MG + D [Concomitant]
  7. BUSPIRONE [Concomitant]
     Active Substance: BUSPIRONE HYDROCHLORIDE
  8. VALACYCLOVIR [Concomitant]
     Active Substance: VALACYCLOVIR HYDROCHLORIDE
  9. DAPSONE 100MG [Concomitant]
  10. ESOMEPRAZOLE [Concomitant]
     Active Substance: ESOMEPRAZOLE
  11. FLUCONAZOLE [Concomitant]
     Active Substance: FLUCONAZOLE
  12. PREDISONE 5MG [Concomitant]
  13. MG PLUS PROTEIN 133MG [Concomitant]

REACTIONS (3)
  - Blood creatinine increased [None]
  - Blood potassium increased [None]
  - Dehydration [None]

NARRATIVE: CASE EVENT DATE: 20250819
